FAERS Safety Report 7784983-8 (Version None)
Quarter: 2011Q3

REPORT INFORMATION
  Report Type: 
  Country: None (occurrence: None)
  Receive Date: 20110928
  Receipt Date: 20110919
  Transmission Date: 20111222
  Serious: Yes (Other)
  Sender: FDA-Public Use
  Company Number: PHEH2009US18747

PATIENT
  Sex: Male
  Weight: 62.2 kg

DRUGS (13)
  1. VALTREX [Concomitant]
     Dosage: 500 MG, QD
  2. COREG [Concomitant]
     Dosage: 3.125 MG, Q12H
  3. ARANESP [Concomitant]
     Indication: ANAEMIA
     Dosage: UNK UKN, UNK
     Dates: start: 20060315
  4. FLOMAX [Concomitant]
     Dosage: 0.4 MG, QD
  5. PRAVASTATIN [Concomitant]
     Dosage: 40 MG, QHS
  6. FERROUS SULFATE TAB [Concomitant]
     Dosage: UNK UKN, UNK
  7. PLAVIX [Concomitant]
     Dosage: 75 MG, QD
  8. COLCHICINE [Concomitant]
     Dosage: 0.6 MG, PRN
  9. GLEEVEC [Suspect]
     Indication: CHRONIC MYELOID LEUKAEMIA
     Dosage: 400 MG, DAILY
     Route: 048
     Dates: start: 20020207
  10. GLEEVEC [Suspect]
     Dosage: 400 MG, DAILY
     Route: 048
     Dates: start: 20070806
  11. BACLOFEN [Concomitant]
     Indication: MUSCLE SPASMS
     Dosage: 5 MG, PRN
  12. CLARITIN [Concomitant]
     Dosage: 10 MG, QD
  13. ASPIRIN [Concomitant]
     Dosage: 81 MG, QD

REACTIONS (14)
  - BLINDNESS [None]
  - PERIPHERAL VASCULAR DISORDER [None]
  - BLADDER TRANSITIONAL CELL CARCINOMA [None]
  - RENAL FAILURE [None]
  - OESOPHAGEAL STENOSIS [None]
  - MUSCLE SPASMS [None]
  - RENAL CANCER [None]
  - VITAMIN B12 DEFICIENCY [None]
  - PEPTIC ULCER [None]
  - RENAL FAILURE CHRONIC [None]
  - CEREBRAL INFARCTION [None]
  - AORTIC CALCIFICATION [None]
  - NEUROPATHY PERIPHERAL [None]
  - DISABILITY [None]
